FAERS Safety Report 20011483 (Version 1)
Quarter: 2021Q4

REPORT INFORMATION
  Report Type: Spontaneous
  Country: CA (occurrence: CA)
  Receive Date: 20211029
  Receipt Date: 20211029
  Transmission Date: 20220304
  Serious: Yes (Hospitalization)
  Sender: FDA-Public Use
  Company Number: CA-TEVA-2021-CA-1969281

PATIENT
  Age: 16 Month
  Sex: Male
  Weight: 10 kg

DRUGS (10)
  1. DOXORUBICIN HYDROCHLORIDE [Suspect]
     Active Substance: DOXORUBICIN HYDROCHLORIDE
     Indication: Hepatoblastoma
     Route: 042
  2. CISPLATIN [Suspect]
     Active Substance: CISPLATIN
     Indication: Hepatoblastoma
     Route: 042
  3. FILGRASTIM [Concomitant]
     Active Substance: FILGRASTIM
  4. DECADRON [Concomitant]
     Active Substance: DEXAMETHASONE
  5. DIPHENHYDRAMINE [Concomitant]
     Active Substance: DIPHENHYDRAMINE
  6. DOMPERIDONE [Concomitant]
     Active Substance: DOMPERIDONE
  7. EMEND [Concomitant]
     Active Substance: APREPITANT
  8. ENOXAPARIN [Concomitant]
     Active Substance: ENOXAPARIN
  9. MAGNESIUM [Concomitant]
     Active Substance: MAGNESIUM
  10. METOCLOPRAMIDE [Concomitant]
     Active Substance: METOCLOPRAMIDE

REACTIONS (1)
  - Febrile neutropenia [Recovered/Resolved]
